FAERS Safety Report 9785848 (Version 2)
Quarter: 2014Q1

REPORT INFORMATION
  Report Type: Spontaneous
  Country: FR (occurrence: None)
  Receive Date: 20131224
  Receipt Date: 20140122
  Transmission Date: 20141002
  Serious: Yes (Hospitalization)
  Sender: FDA-Public Use
  Company Number: SYM-2013-14126

PATIENT
  Age: 86 Year
  Sex: Female

DRUGS (8)
  1. FLAGYL (METRONIDAZOLE) (METRONIDAZOLE) [Suspect]
     Indication: INFECTION
     Dosage: 500 MG, 3 IN 1 D, ORAL
     Route: 048
     Dates: start: 20131206, end: 20131211
  2. SOLIAN [Suspect]
     Indication: AGITATION
     Route: 048
     Dates: start: 20131028
  3. OFLOXACIN (OFLOXACIN) (OFLOXACIN) [Suspect]
     Indication: INFECTION
     Route: 048
     Dates: start: 20131206, end: 20131211
  4. TEMERIT [Concomitant]
  5. PREVISCAN (FLUINDIONE) (FLUINDIONE) [Concomitant]
  6. INEXIUM (ESOMEPRAZOLE MAGNESIUM) (ESOMEPRAZOLE MAGNESIUM) [Concomitant]
  7. ACTISKENAN (MORPHINE SULFATE) (MORPHINE SULFATE) [Concomitant]
  8. DUPHALAC (LACTULOSE) (LACTULOSE) [Concomitant]

REACTIONS (5)
  - Liver injury [None]
  - Aspartate aminotransferase increased [None]
  - Alanine aminotransferase increased [None]
  - Blood alkaline phosphatase increased [None]
  - Gamma-glutamyltransferase increased [None]
